FAERS Safety Report 13767733 (Version 2)
Quarter: 2017Q3

REPORT INFORMATION
  Report Type: Report from Study
  Country: FR (occurrence: FR)
  Receive Date: 20170719
  Receipt Date: 20170807
  Transmission Date: 20171127
  Serious: Yes (Hospitalization)
  Sender: FDA-Public Use
  Company Number: FR-ROCHE-1960690

PATIENT
  Age: 59 Year
  Sex: Female

DRUGS (4)
  1. CARBOPLATIN. [Suspect]
     Active Substance: CARBOPLATIN
     Indication: RECURRENT CANCER
     Dosage: DOSE/FREQUENCY: AUC 5, DAY 1, 6 OF EVERY CYCLE?DATE OF LAST DOSE OF PRIOR TO EVENT: 19/JAN/2017.
     Route: 042
     Dates: start: 20161223
  2. BEVACIZUMAB. [Suspect]
     Active Substance: BEVACIZUMAB
     Indication: RECURRENT CANCER
     Dosage: FREQUENCY: DAY 1 AND 15, OF EVERY CYCLE?DATE OF LAST DOSE OF PRIOR TO EVENT: 19/JAN/2017.
     Route: 042
     Dates: start: 20161223
  3. ATEZOLIZUMAB. [Suspect]
     Active Substance: ATEZOLIZUMAB
     Indication: RECURRENT CANCER
     Dosage: FREQUENCY: DAY 1 AND 15, OF EVERY CYCLE?DATE OF LAST DOSE OF PRIOR TO EVENT: 02/FEB/2017.
     Route: 042
     Dates: start: 20161223
  4. PEGYLATED LIPOSOMAL DOXORUBICIN [Suspect]
     Active Substance: DOXORUBICIN
     Indication: RECURRENT CANCER
     Dosage: DOSE/FREQUENCY: 30 MG/M2, DAY 1, OF EVERY CYCLE?DATE OF LAST DOSE OF PRIOR TO EVENT: 19/JAN/2017.
     Route: 042
     Dates: start: 20161223

REACTIONS (1)
  - General physical health deterioration [Recovered/Resolved]

NARRATIVE: CASE EVENT DATE: 20170208
